FAERS Safety Report 15850805 (Version 3)
Quarter: 2019Q1

REPORT INFORMATION
  Report Type: Spontaneous
  Country: SE (occurrence: SE)
  Receive Date: 20190121
  Receipt Date: 20190207
  Transmission Date: 20190417
  Serious: Yes (Hospitalization, Other)
  Sender: FDA-Public Use
  Company Number: SE-MYLANLABS-2019M1004959

PATIENT
  Age: 40 Year
  Sex: Female

DRUGS (9)
  1. BELIMUMAB [Concomitant]
     Active Substance: BELIMUMAB
     Indication: LUPUS NEPHRITIS
     Dosage: 800 MILLIGRAM, UNK (AS MAINTENANCE DOSE)
     Route: 042
  2. RITUXIMAB. [Concomitant]
     Active Substance: RITUXIMAB
     Indication: LUPUS NEPHRITIS
     Dosage: 1000 MILLIGRAM, UNK (TWO WEEKS APART)
     Route: 042
     Dates: start: 201410
  3. PREDNISOLONE. [Suspect]
     Active Substance: PREDNISOLONE
     Indication: LUPUS NEPHRITIS
     Dosage: 5 MILLIGRAM, UNK
     Route: 065
  4. MYCOPHENOLATE MOFETIL. [Suspect]
     Active Substance: MYCOPHENOLATE MOFETIL
     Indication: LUPUS NEPHRITIS
     Dosage: 2000 MILLIGRAM, UNK
     Route: 065
  5. HYDROXYCHLOROQUINE [Suspect]
     Active Substance: HYDROXYCHLOROQUINE
     Dosage: 400 MILLIGRAM, UNK
     Route: 065
  6. HYDROXYCHLOROQUINE [Suspect]
     Active Substance: HYDROXYCHLOROQUINE
     Indication: LUPUS NEPHRITIS
     Dosage: 200 MILLIGRAM, UNK
     Route: 065
  7. DEXAMETHASONE. [Concomitant]
     Active Substance: DEXAMETHASONE
     Indication: LUPUS NEPHRITIS
     Dosage: UNK
     Route: 065
     Dates: start: 2015
  8. BORTEZOMIB. [Concomitant]
     Active Substance: BORTEZOMIB
     Indication: LUPUS NEPHRITIS
     Dosage: UNK
     Route: 065
     Dates: start: 2015
  9. CYCLOPHOSPHAMIDE. [Concomitant]
     Active Substance: CYCLOPHOSPHAMIDE
     Indication: LUPUS NEPHRITIS
     Dosage: 800 MILLIGRAM, UNK
     Route: 065
     Dates: start: 2014

REACTIONS (5)
  - Appendicitis [Unknown]
  - Off label use [Unknown]
  - Intentional product use issue [Unknown]
  - Drug abuse [Unknown]
  - Intentional product misuse [Unknown]

NARRATIVE: CASE EVENT DATE: 201607
